FAERS Safety Report 8808970 (Version 1)
Quarter: 2012Q4

REPORT INFORMATION
  Report Type: Spontaneous
  Country: US (occurrence: None)
  Receive Date: 20120920
  Receipt Date: 20120920
  Transmission Date: 20130627
  Serious: Yes (Life-Threatening, Hospitalization)
  Sender: FDA-Public Use
  Company Number: None

PATIENT
  Age: 77 Year
  Sex: Male
  Weight: 82.2 kg

DRUGS (1)
  1. NAPROXEN [Suspect]
     Indication: PAIN
     Dosage: 500 MG BID PO
     Route: 048
     Dates: start: 20090710, end: 20120724

REACTIONS (7)
  - Exercise tolerance decreased [None]
  - Faeces discoloured [None]
  - Orthostatic hypotension [None]
  - Nausea [None]
  - Upper gastrointestinal haemorrhage [None]
  - Anaemia [None]
  - Gastric ulcer [None]
